FAERS Safety Report 5255094-0 (Version None)
Quarter: 2007Q1

REPORT INFORMATION
  Report Type: 
  Country: None (occurrence: None)
  Receive Date: 20070305
  Receipt Date: 20070221
  Transmission Date: 20070707
  Serious: Yes (Hospitalization, Other)
  Sender: FDA-Public Use
  Company Number: PHBS2007JP03120

PATIENT
  Age: 59 Year
  Sex: Female

DRUGS (3)
  1. CYCLOSPORINE [Suspect]
     Indication: JUVENILE ARTHRITIS
     Route: 065
  2. SOL MEDROL [Concomitant]
     Indication: JUVENILE ARTHRITIS
     Dosage: 1 G/DAY
  3. STEROIDS NOS [Concomitant]
     Indication: JUVENILE ARTHRITIS

REACTIONS (11)
  - BLOOD LACTATE DEHYDROGENASE INCREASED [None]
  - C-REACTIVE PROTEIN INCREASED [None]
  - CONDITION AGGRAVATED [None]
  - CYTOMEGALOVIRUS ANTIGEN POSITIVE [None]
  - CYTOMEGALOVIRUS INFECTION [None]
  - JUVENILE ARTHRITIS [None]
  - LIFE SUPPORT [None]
  - PAO2/FIO2 RATIO DECREASED [None]
  - PNEUMONIA CYTOMEGALOVIRAL [None]
  - PYREXIA [None]
  - SERUM FERRITIN INCREASED [None]
